FAERS Safety Report 6189811-2 (Version None)
Quarter: 2009Q2

REPORT INFORMATION
  Report Type: 
  Country: None (occurrence: None)
  Receive Date: 20090514
  Receipt Date: 20071116
  Transmission Date: 20091009
  Serious: Yes (Other)
  Sender: FDA-Public Use
  Company Number: US-ASTRAZENECA-2006UW21410

PATIENT
  Age: 21735 Day
  Sex: Female
  Weight: 108.9 kg

DRUGS (26)
  1. SEROQUEL [Suspect]
     Indication: SCHIZOPHRENIA
     Route: 048
     Dates: start: 20050615
  2. SEROQUEL [Suspect]
     Indication: DEPRESSION
     Route: 048
     Dates: start: 20050615
  3. SEROQUEL [Suspect]
     Dosage: 25-100 MG
     Route: 048
  4. SEROQUEL [Suspect]
     Dosage: 25-100 MG
     Route: 048
  5. VERAPAMIL [Concomitant]
     Dosage: 240-360 MG
     Route: 048
  6. LOVASTATIN [Concomitant]
     Route: 048
  7. PREVACID [Concomitant]
     Route: 048
  8. ACTOS [Concomitant]
     Dosage: 30-45 MG
     Route: 048
  9. POTASSIUM CHLORIDE [Concomitant]
     Route: 048
  10. TRAZODONE HCL [Concomitant]
     Dosage: 50-100 MG
     Route: 048
  11. PRANDIN [Concomitant]
     Route: 048
  12. AVANDIA [Concomitant]
     Route: 048
     Dates: end: 20070524
  13. BETIMOL [Concomitant]
     Route: 047
  14. ICAR-C [Concomitant]
     Route: 048
  15. GLYBURIDE [Concomitant]
     Dosage: 3-6 MG
     Route: 048
  16. FERROUS SULFATE TAB [Concomitant]
     Route: 048
  17. BENICAR HCT [Concomitant]
     Dosage: 40/12.5 MG EVERY DAY, 40/25 MG EVERY DAY
     Route: 048
  18. ALPHAGAN [Concomitant]
     Dosage: 0.15-0.2 PERCENTAGE
     Route: 047
  19. METOPROLOL [Concomitant]
     Route: 048
  20. PROCRIT [Concomitant]
     Route: 042
  21. FISH OIL [Concomitant]
     Dosage: 5-10 MG
     Route: 048
  22. LEVOXYL [Concomitant]
     Dosage: 0.075-1 MG
     Route: 048
  23. ROCALTROL [Concomitant]
     Dosage: 0.25 MCG
     Route: 048
  24. LASIX [Concomitant]
     Route: 048
  25. PAXIL [Concomitant]
     Dosage: 20-60 MG
     Route: 048
  26. LIPITOR [Concomitant]
     Route: 048

REACTIONS (5)
  - DIABETES MELLITUS [None]
  - HYPERPARATHYROIDISM SECONDARY [None]
  - HYPOTHYROIDISM [None]
  - NEPHROGENIC ANAEMIA [None]
  - RENAL FAILURE CHRONIC [None]
